FAERS Safety Report 5989670-4 (Version None)
Quarter: 2008Q4

REPORT INFORMATION
  Report Type: 
  Country: None (occurrence: None)
  Receive Date: 20081208
  Receipt Date: 20081201
  Transmission Date: 20090506
  Serious: Yes (Other)
  Sender: FDA-Public Use
  Company Number: 1000002962

PATIENT
  Age: 48 Year
  Sex: Male

DRUGS (2)
  1. CARBAMAZEPINE [Suspect]
     Indication: PETIT MAL EPILEPSY
     Dosage: 200 MG (200 MG, 1 IN 1 D)
  2. PHENOBARBITAL [Concomitant]

REACTIONS (1)
  - INTERSTITIAL LUNG DISEASE [None]
